FAERS Safety Report 7531508-8 (Version None)
Quarter: 2011Q2

REPORT INFORMATION
  Report Type: 
  Country: None (occurrence: None)
  Receive Date: 20110601
  Receipt Date: 20110519
  Transmission Date: 20111010
  Serious: Yes (Other)
  Sender: FDA-Public Use
  Company Number: JP-2011-10364

PATIENT
  Age: 59 Year
  Sex: Female
  Weight: 46 kg

DRUGS (3)
  1. MEXILETINE HYDROCHLORIDE [Suspect]
     Dosage: 1 DF DOSAGE FORM, BID, ORAL
     Route: 048
     Dates: start: 20030920
  2. PLETAL [Suspect]
     Indication: CEREBRAL INFARCTION
     Dosage: 50 MG MILLIGRAM(S), QPM, ORAL
     Route: 048
     Dates: start: 20110122, end: 20110124
  3. VASOLAN (VERAPAMIL HYDROCHLORIDE) TABLET [Suspect]
     Dosage: 40 MG MILLIGRAM(S) BID, ORAL
     Route: 048
     Dates: start: 20100928

REACTIONS (1)
  - ALOPECIA TOTALIS [None]
